FAERS Safety Report 8789778 (Version 1)
Quarter: 2012Q4

REPORT INFORMATION
  Report Type: 
  Country: US (occurrence: None)
  Receive Date: 20120911
  Receipt Date: 20120911
  Transmission Date: 20130627
  Serious: Yes (Hospitalization)
  Sender: FDA-Public Use
  Company Number: None

PATIENT
  Sex: Female
  Weight: 102.27 kg

DRUGS (1)
  1. CARBOPLATIN [Suspect]

REACTIONS (4)
  - Heart rate increased [None]
  - Atrial fibrillation [None]
  - Infarction [None]
  - Cardiomegaly [None]
